FAERS Safety Report 10013799 (Version 2)
Quarter: 2014Q1

REPORT INFORMATION
  Report Type: Spontaneous
  Country: US (occurrence: US)
  Receive Date: 20140316
  Receipt Date: 20140316
  Transmission Date: 20141002
  Serious: Yes (Other)
  Sender: FDA-Public Use
  Company Number: US-GE HEALTHCARE MEDICAL DIAGNOSTICS-OSCN-PR-0905S-0231

PATIENT
  Age: 49 Year
  Sex: Female

DRUGS (5)
  1. OMNISCAN [Suspect]
     Indication: PANCREATITIS CHRONIC
     Route: 042
     Dates: start: 20040429, end: 20040429
  2. OMNISCAN [Suspect]
     Route: 042
     Dates: start: 20060112, end: 20060112
  3. OMNISCAN [Suspect]
     Route: 042
     Dates: start: 20060425, end: 20060425
  4. OMNISCAN [Suspect]
     Route: 042
     Dates: start: 20060509, end: 20060509
  5. OMNISCAN [Suspect]
     Route: 042
     Dates: start: 20060811, end: 20060811

REACTIONS (1)
  - Nephrogenic systemic fibrosis [Not Recovered/Not Resolved]
